FAERS Safety Report 12467211 (Version 4)
Quarter: 2016Q3

REPORT INFORMATION
  Report Type: Report from Study
  Country: AU (occurrence: AU)
  Receive Date: 20160615
  Receipt Date: 20160809
  Transmission Date: 20161109
  Serious: Yes (Hospitalization)
  Sender: FDA-Public Use
  Company Number: AU-ROCHE-1775724

PATIENT
  Sex: Female

DRUGS (22)
  1. ACTEMRA [Suspect]
     Active Substance: TOCILIZUMAB
     Route: 042
     Dates: start: 20160516
  2. NOTEN [Concomitant]
     Active Substance: ATENOLOL
     Route: 065
  3. ROSUZET COMPOSITE PACK [Concomitant]
     Dosage: 10MG/40MG, 1 OF EACH DAILY
     Route: 065
  4. MAGMIN [Concomitant]
     Active Substance: MAGNESIUM ASPARTATE
     Route: 065
  5. OSTEVIT-D [Concomitant]
     Dosage: 25MCG/0.2ML, ORAL DROPS
     Route: 048
  6. PREDNISONE. [Concomitant]
     Active Substance: PREDNISONE
     Route: 065
  7. PROLIA [Concomitant]
     Active Substance: DENOSUMAB
     Dosage: 60MG/ML
     Route: 065
  8. XARELTO [Concomitant]
     Active Substance: RIVAROXABAN
     Route: 065
  9. FLAMINAL HYDRO [Concomitant]
     Route: 061
  10. HIPREX [Concomitant]
     Active Substance: METHENAMINE HIPPURATE
     Route: 065
  11. NEXIUM [Concomitant]
     Active Substance: ESOMEPRAZOLE MAGNESIUM
     Dosage: 1 TABLET
     Route: 065
  12. IBUPROFEN. [Suspect]
     Active Substance: IBUPROFEN
     Indication: PRODUCT USED FOR UNKNOWN INDICATION
     Route: 065
  13. MEGAFOL [Concomitant]
     Active Substance: FOLIC ACID
     Route: 065
  14. PANADOL [Concomitant]
     Active Substance: ACETAMINOPHEN
     Route: 065
  15. TEMAZE [Concomitant]
     Active Substance: TEMAZEPAM
     Route: 065
  16. XALATAN [Concomitant]
     Active Substance: LATANOPROST
     Dosage: 50MCG/ML, 1 DROP EACH EYE
     Route: 065
  17. PRAMIPEXOLE HYDROCHLORIDE MONOHYDRATE [Suspect]
     Active Substance: PRAMIPEXOLE
     Indication: PRODUCT USED FOR UNKNOWN INDICATION
     Route: 065
  18. FLECAINIDE ACETATE. [Concomitant]
     Active Substance: FLECAINIDE ACETATE
     Route: 065
  19. HYDROXYCHLOROQUINE SULFATE. [Suspect]
     Active Substance: HYDROXYCHLOROQUINE SULFATE
     Indication: PRODUCT USED FOR UNKNOWN INDICATION
     Route: 065
  20. GANFORT [Concomitant]
     Active Substance: BIMATOPROST\TIMOLOL
     Dosage: 0.3MG/5MG PER 1 ML EYE DROPS
     Route: 065
  21. ACTEMRA [Suspect]
     Active Substance: TOCILIZUMAB
     Indication: RHEUMATOID ARTHRITIS
     Route: 042
     Dates: start: 20160104
  22. NORVASC [Concomitant]
     Active Substance: AMLODIPINE BESYLATE
     Route: 065

REACTIONS (11)
  - Rash [Unknown]
  - Osteoporosis [Unknown]
  - Syncope [Unknown]
  - Polymyalgia rheumatica [Unknown]
  - Tricuspid valve incompetence [Unknown]
  - Hallucination [Unknown]
  - Wound secretion [None]
  - Hypertension [Unknown]
  - Mitral valve incompetence [Unknown]
  - Skin lesion [Recovering/Resolving]
  - Impaired healing [None]
